FAERS Safety Report 25804415 (Version 1)
Quarter: 2025Q3

REPORT INFORMATION
  Report Type: Spontaneous
  Country: CA (occurrence: CA)
  Receive Date: 20250915
  Receipt Date: 20250915
  Transmission Date: 20251020
  Serious: Yes (Life-Threatening, Hospitalization, Disabling)
  Sender: TAIHO ONCOLOGY INC
  Company Number: CA-TAIHOP-2025-009832

PATIENT
  Age: 69 Year
  Sex: Female

DRUGS (3)
  1. INQOVI [Suspect]
     Active Substance: CEDAZURIDINE\DECITABINE
     Indication: Myelodysplastic syndrome
     Dosage: DOSE : 3 DOSAGE FORMS?FREQUENCY : 1 EVERY 28 DAYS?CYCLE UNKNOWN
     Route: 048
  2. NITROFURANTOIN [Concomitant]
     Active Substance: NITROFURANTOIN
     Indication: Product used for unknown indication
  3. HERBALS [Concomitant]
     Active Substance: HERBALS
     Indication: Product used for unknown indication

REACTIONS (2)
  - Acute leukaemia [Not Recovered/Not Resolved]
  - Interstitial lung disease [Not Recovered/Not Resolved]
